FAERS Safety Report 5035336-7 (Version None)
Quarter: 2006Q2

REPORT INFORMATION
  Report Type: 
  Country: None (occurrence: None)
  Receive Date: 20060523
  Receipt Date: 20050329
  Transmission Date: 20061013
  Serious: Yes (Other)
  Sender: FDA-Public Use
  Company Number: 0503-138

PATIENT
  Age: 70 Year
  Sex: Male
  Weight: 83.9154 kg

DRUGS (1)
  1. DUONEB [Suspect]
     Indication: CHRONIC OBSTRUCTIVE PULMONARY DISEASE
     Dosage: 3-4 TIMES DAILY; LITTLE OVER ONE YEAR

REACTIONS (2)
  - DYSGEUSIA [None]
  - STOMACH DISCOMFORT [None]
